FAERS Safety Report 8302350-5 (Version None)
Quarter: 2012Q2

REPORT INFORMATION
  Report Type: 
  Country: None (occurrence: None)
  Receive Date: 20120420
  Receipt Date: 20120410
  Transmission Date: 20120825
  Serious: Yes (Hospitalization)
  Sender: FDA-Public Use
  Company Number: PL-JNJFOC-20120408230

PATIENT
  Age: 44 Year
  Sex: Female
  Weight: 82 kg

DRUGS (7)
  1. TRAMADOL HYDROCHLORIDE [Suspect]
     Indication: MIGRAINE
     Route: 048
  2. TRAMADOL HYDROCHLORIDE [Suspect]
     Indication: FIBROMYALGIA
     Route: 048
  3. SERTRALINE HYDROCHLORIDE [Concomitant]
     Indication: PRODUCT USED FOR UNKNOWN INDICATION
     Route: 065
     Dates: start: 20120124, end: 20120224
  4. SUMATRIPTAN SUCCINATE [Interacting]
     Indication: PRODUCT USED FOR UNKNOWN INDICATION
     Route: 065
     Dates: start: 20120124, end: 20120224
  5. TRAMADOL HYDROCHLORIDE [Suspect]
     Route: 048
     Dates: start: 20120124, end: 20120224
  6. ZOLPIDEM TARTRATE [Interacting]
     Indication: PRODUCT USED FOR UNKNOWN INDICATION
     Route: 065
  7. TRAMADOL HYDROCHLORIDE [Suspect]
     Route: 048
     Dates: start: 20120124, end: 20120224

REACTIONS (2)
  - DRUG INTERACTION [None]
  - SEROTONIN SYNDROME [None]
